FAERS Safety Report 24444138 (Version 1)
Quarter: 2024Q4

REPORT INFORMATION
  Report Type: Spontaneous
  Country: US (occurrence: None)
  Receive Date: 20241015
  Receipt Date: 20241015
  Transmission Date: 20250115
  Serious: Yes (Hospitalization)
  Sender: Public
  Company Number: None

PATIENT
  Sex: Female

DRUGS (3)
  1. SILDENAFIL CITRATE [Suspect]
     Active Substance: SILDENAFIL CITRATE
     Indication: Pulmonary arterial hypertension
     Dosage: FREQUENCY : 3 TIMES A DAY;?
     Route: 048
     Dates: start: 202201
  2. TYVASO [Concomitant]
     Active Substance: TREPROSTINIL
  3. TRACLEER [Concomitant]
     Active Substance: BOSENTAN

REACTIONS (3)
  - Dyspnoea [None]
  - Oxygen saturation decreased [None]
  - COVID-19 [None]
